FAERS Safety Report 7005414-1 (Version None)
Quarter: 2010Q3

REPORT INFORMATION
  Report Type: 
  Country: None (occurrence: None)
  Receive Date: 20100920
  Receipt Date: 20100920
  Transmission Date: 20110219
  Serious: Yes (Other)
  Sender: FDA-Public Use
  Company Number: None

PATIENT
  Age: 61 Year
  Sex: Female
  Weight: 61.2356 kg

DRUGS (3)
  1. IBUPROFEN [Suspect]
     Indication: ARTHRALGIA
     Dosage: 200MG 2-3XS DAILY
     Dates: start: 20090201, end: 20091217
  2. IBUPROFEN [Suspect]
     Indication: MUSCULOSKELETAL STIFFNESS
     Dosage: 200MG 2-3XS DAILY
     Dates: start: 20090201, end: 20091217
  3. CIPRO [Suspect]
     Indication: DIARRHOEA
     Dosage: 500MG 2XS DAILY
     Dates: start: 20091015, end: 20091025

REACTIONS (2)
  - DIARRHOEA [None]
  - PRODUCT QUALITY ISSUE [None]
